FAERS Safety Report 12449272 (Version 9)
Quarter: 2016Q3

REPORT INFORMATION
  Report Type: Spontaneous
  Country: AU (occurrence: AU)
  Receive Date: 20160608
  Receipt Date: 20160919
  Transmission Date: 20161109
  Serious: Yes (Hospitalization, Other)
  Sender: FDA-Public Use
  Company Number: AU-TAKEDA-2016MPI005296

PATIENT
  Age: 75 Year
  Sex: Male
  Weight: 103 kg

DRUGS (40)
  1. VELCADE [Suspect]
     Active Substance: BORTEZOMIB
     Dosage: 2.9 MG, UNK
     Route: 058
     Dates: start: 20160614
  2. VELCADE [Suspect]
     Active Substance: BORTEZOMIB
     Dosage: 2.9 MG, UNK
     Route: 058
     Dates: start: 20160726
  3. PREDNISOLONE. [Suspect]
     Active Substance: PREDNISOLONE
     Indication: PLASMA CELL MYELOMA
     Dosage: 100 MG, UNK
     Route: 048
     Dates: start: 20160405, end: 20160408
  4. AUGMENTIN [Concomitant]
     Active Substance: AMOXICILLIN\CLAVULANATE POTASSIUM
     Indication: LOWER RESPIRATORY TRACT INFECTION
     Dosage: UNK, BID
     Route: 048
     Dates: start: 20160421, end: 20160425
  5. AUGMENTIN [Concomitant]
     Active Substance: AMOXICILLIN\CLAVULANATE POTASSIUM
     Dosage: 1000 MG, UNK
     Route: 048
     Dates: start: 20160530, end: 20160603
  6. SPIRONOLACTONE. [Concomitant]
     Active Substance: SPIRONOLACTONE
     Indication: DIURETIC THERAPY
     Dosage: 25 MG, QD
     Route: 048
     Dates: start: 20160530
  7. FRUSEMIDE                          /00032601/ [Concomitant]
     Active Substance: FUROSEMIDE
     Indication: DIURETIC THERAPY
     Dosage: 20 MG, QD
     Route: 048
     Dates: start: 20160607
  8. VELCADE [Suspect]
     Active Substance: BORTEZOMIB
     Dosage: 2.9 MG, UNK
     Route: 058
     Dates: start: 20160426
  9. CALTRATE                           /00944201/ [Concomitant]
     Indication: HYPOCALCAEMIA
     Dosage: 600 MG, QD
     Route: 048
     Dates: start: 20160503, end: 20160514
  10. AUGMENTIN [Concomitant]
     Active Substance: AMOXICILLIN\CLAVULANATE POTASSIUM
     Dosage: 1000 MG, BID
     Route: 048
     Dates: start: 20160530, end: 20160603
  11. OXAZEPAM. [Concomitant]
     Active Substance: OXAZEPAM
     Indication: INSOMNIA
     Dosage: UNK
     Route: 048
     Dates: start: 20160421
  12. CEFTRIAXON [Concomitant]
     Active Substance: CEFTRIAXONE
     Indication: BRONCHITIS
     Dosage: 1 G, UNK
     Route: 042
     Dates: start: 20160510, end: 20160513
  13. PANTOPRAZOLE [Concomitant]
     Active Substance: PANTOPRAZOLE SODIUM
     Indication: PROPHYLAXIS
     Dosage: 40 MG, QD
     Route: 048
     Dates: start: 20160509
  14. VELCADE [Suspect]
     Active Substance: BORTEZOMIB
     Dosage: 2.9 MG, UNK
     Route: 058
     Dates: start: 20160412
  15. VELCADE [Suspect]
     Active Substance: BORTEZOMIB
     Dosage: 2.9 MG, UNK
     Route: 058
     Dates: start: 20160628
  16. VELCADE [Suspect]
     Active Substance: BORTEZOMIB
     Dosage: 2.9 MG, UNK
     Route: 058
     Dates: start: 20160705
  17. VELCADE [Suspect]
     Active Substance: BORTEZOMIB
     Dosage: 2.9 MG, UNK
     Route: 058
     Dates: start: 20160607
  18. MELPHALAN [Suspect]
     Active Substance: MELPHALAN
     Dosage: 20 MG, UNK
     Route: 048
     Dates: start: 20160607, end: 20160610
  19. ALUMINIUM HYDROXIDE W/MAGNESIUM TRISILICATE [Concomitant]
     Indication: MUSCLE SPASMS
     Dosage: UNK
     Route: 048
     Dates: start: 2013
  20. TELMISARTAN. [Concomitant]
     Active Substance: TELMISARTAN
     Indication: HYPERTENSION
     Dosage: 40 MG, UNK
     Route: 048
     Dates: start: 2005, end: 20160524
  21. VALACICLOVIR [Concomitant]
     Active Substance: VALACYCLOVIR HYDROCHLORIDE
     Indication: HERPES ZOSTER
     Dosage: 500 MG, UNK
     Route: 048
     Dates: start: 20160405
  22. RESPRIM [Concomitant]
     Indication: INFECTION PROPHYLAXIS
     Dosage: UNK, QD
     Route: 048
     Dates: start: 20160405
  23. AUGMENTIN [Concomitant]
     Active Substance: AMOXICILLIN\CLAVULANATE POTASSIUM
     Indication: HYPONATRAEMIA
     Dosage: UNK, BID
     Route: 048
     Dates: start: 20160513, end: 20160519
  24. VELCADE [Suspect]
     Active Substance: BORTEZOMIB
     Dosage: 2.9 MG, UNK
     Route: 058
     Dates: start: 20160408
  25. VELCADE [Suspect]
     Active Substance: BORTEZOMIB
     Dosage: 2.9 MG, UNK
     Route: 058
     Dates: start: 20160415
  26. VELCADE [Suspect]
     Active Substance: BORTEZOMIB
     Dosage: 2.9 MG, UNK
     Route: 058
     Dates: start: 20160719
  27. MELPHALAN [Suspect]
     Active Substance: MELPHALAN
     Indication: PLASMA CELL MYELOMA
     Dosage: 20 MG, UNK
     Route: 048
     Dates: start: 20160405, end: 20160408
  28. SLOW K [Concomitant]
     Active Substance: POTASSIUM CHLORIDE
     Indication: ADVERSE EVENT
     Dosage: 600 MG, QD
     Route: 048
     Dates: start: 20160503, end: 20160515
  29. AUGMENTIN [Concomitant]
     Active Substance: AMOXICILLIN\CLAVULANATE POTASSIUM
     Dosage: UNK, BID
     Route: 048
     Dates: start: 20160513, end: 20160519
  30. VELCADE [Suspect]
     Active Substance: BORTEZOMIB
     Indication: PLASMA CELL MYELOMA
     Dosage: 2.3 MG, UNK
     Route: 058
     Dates: start: 20160405, end: 20160506
  31. VELCADE [Suspect]
     Active Substance: BORTEZOMIB
     Dosage: 2.9 MG, UNK
     Route: 058
     Dates: start: 20160503
  32. VELCADE [Suspect]
     Active Substance: BORTEZOMIB
     Dosage: 2.9 MG, UNK
     Route: 058
     Dates: start: 20160809
  33. FENOFIBRATE. [Concomitant]
     Active Substance: FENOFIBRATE
     Indication: HYPERLIPIDAEMIA
     Dosage: 140 MG, UNK
     Route: 048
     Dates: start: 2012
  34. VITAMIN D                          /00107901/ [Concomitant]
     Active Substance: ERGOCALCIFEROL
     Indication: PROPHYLAXIS
     Dosage: UNK, QD
     Route: 048
     Dates: start: 20160405
  35. AUGMENTIN [Concomitant]
     Active Substance: AMOXICILLIN\CLAVULANATE POTASSIUM
     Dosage: UNK, BID
     Route: 048
     Dates: start: 20160421, end: 20160425
  36. VELCADE [Suspect]
     Active Substance: BORTEZOMIB
     Dosage: 2.9 MG, UNK
     Route: 058
     Dates: start: 20160506
  37. ALLOPURINOL. [Concomitant]
     Active Substance: ALLOPURINOL
     Indication: GOUT
     Dosage: 200 MG, UNK
     Route: 048
     Dates: start: 1980
  38. ZOMETA [Concomitant]
     Active Substance: ZOLEDRONIC ACID
     Indication: PROPHYLAXIS
     Dosage: 4 MG, UNK
     Route: 042
     Dates: start: 20160405
  39. AMOXICILLIN. [Concomitant]
     Active Substance: AMOXICILLIN
     Indication: LOWER RESPIRATORY TRACT INFECTION
     Dosage: 500 MG, BID
     Route: 048
     Dates: start: 20160421
  40. COLOXYL WITH SENNA [Concomitant]
     Active Substance: DOCUSATE\SENNOSIDES
     Indication: CONSTIPATION
     Dosage: UNK, BID
     Route: 048
     Dates: start: 20160421

REACTIONS (11)
  - Infective exacerbation of chronic obstructive airways disease [Recovered/Resolved]
  - Cellulitis [Recovered/Resolved]
  - Lower respiratory tract infection [Recovered/Resolved]
  - Insomnia [Not Recovered/Not Resolved]
  - Hypocalcaemia [Recovered/Resolved]
  - Neutropenia [Recovered/Resolved]
  - Diarrhoea [Unknown]
  - Clostridium difficile colitis [Recovered/Resolved]
  - Thrombocytopenia [Recovered/Resolved]
  - Rash [Unknown]
  - Constipation [Recovered/Resolved]

NARRATIVE: CASE EVENT DATE: 20160405
